FAERS Safety Report 8133512-8 (Version None)
Quarter: 2012Q1

REPORT INFORMATION
  Report Type: 
  Country: None (occurrence: None)
  Receive Date: 20120103
  Receipt Date: 20111111
  Transmission Date: 20120608
  Serious: No
  Sender: FDA-Public Use
  Company Number: AE-2011-003362

PATIENT
  Age: 52 Year
  Sex: Female
  Weight: 123.3784 kg

DRUGS (5)
  1. BENICAR [Concomitant]
  2. INCIVEK [Suspect]
     Dosage: 2250 MG (750 MG,1 IN 8 HR),ORAL
     Route: 048
     Dates: start: 20111107
  3. PEGASYS [Concomitant]
  4. RIBAVIRIN [Concomitant]
  5. ATENOLOL [Concomitant]

REACTIONS (3)
  - SNEEZING [None]
  - PAIN [None]
  - NAUSEA [None]
